FAERS Safety Report 12570519 (Version 1)
Quarter: 2016Q3

REPORT INFORMATION
  Report Type: Report from Study
  Country: US (occurrence: US)
  Receive Date: 20160719
  Receipt Date: 20160719
  Transmission Date: 20161109
  Serious: Yes (Hospitalization, Other)
  Sender: FDA-Public Use
  Company Number: US-MALLINCKRODT-T201602886

PATIENT
  Age: 75 Year
  Sex: Female

DRUGS (3)
  1. PREDNISONE. [Concomitant]
     Active Substance: PREDNISONE
  2. PREDNISONE. [Concomitant]
     Active Substance: PREDNISONE
     Dosage: 40 MG, BID
  3. REPOSITORY CORTICOTROPIN INJECTION [Suspect]
     Active Substance: CORTICOTROPIN
     Indication: PROTEINURIA
     Dosage: 40U/0.5 ML 2X/WK (MON. AND FRI.)
     Route: 058
     Dates: start: 20160401, end: 20160620

REACTIONS (9)
  - Rhinorrhoea [Recovering/Resolving]
  - Rash [Recovering/Resolving]
  - Influenza like illness [Recovering/Resolving]
  - Asthenia [Recovering/Resolving]
  - Renal disorder [Not Recovered/Not Resolved]
  - Skin discolouration [Recovering/Resolving]
  - Peripheral swelling [Not Recovered/Not Resolved]
  - Blood pressure increased [Unknown]
  - Headache [Not Recovered/Not Resolved]

NARRATIVE: CASE EVENT DATE: 20160622
